FAERS Safety Report 23628358 (Version 4)
Quarter: 2025Q2

REPORT INFORMATION
  Report Type: Report from Study
  Country: CA (occurrence: CA)
  Receive Date: 20240313
  Receipt Date: 20250502
  Transmission Date: 20250717
  Serious: Yes (Hospitalization, Other)
  Sender: TAKEDA
  Company Number: CA-TAKEDA-2022TUS033813

PATIENT
  Age: 87 Year
  Sex: Female

DRUGS (15)
  1. VEDOLIZUMAB [Suspect]
     Active Substance: VEDOLIZUMAB
     Indication: Crohn^s disease
  2. VEDOLIZUMAB [Suspect]
     Active Substance: VEDOLIZUMAB
  3. VEDOLIZUMAB [Suspect]
     Active Substance: VEDOLIZUMAB
  4. VEDOLIZUMAB [Suspect]
     Active Substance: VEDOLIZUMAB
  5. VEDOLIZUMAB [Suspect]
     Active Substance: VEDOLIZUMAB
  6. ENTOCORT [Concomitant]
     Active Substance: BUDESONIDE
  7. HYDROCHLOROTHIAZIDE [Concomitant]
     Active Substance: HYDROCHLOROTHIAZIDE
  8. SYNTHROID [Concomitant]
     Active Substance: LEVOTHYROXINE SODIUM
  9. PANTOPRAZOLE [Concomitant]
     Active Substance: PANTOPRAZOLE
  10. TELMISARTAN [Concomitant]
     Active Substance: TELMISARTAN
  11. FERAMAX [Concomitant]
     Active Substance: IRON\POLYSACCHARIDES
  12. IRON [Concomitant]
     Active Substance: IRON
  13. LATANOPROST [Concomitant]
     Active Substance: LATANOPROST
  14. METAMUCIL [Concomitant]
     Active Substance: PLANTAGO SEED
  15. GAS-X [Concomitant]
     Active Substance: DIMETHICONE

REACTIONS (11)
  - Urinary tract infection [Unknown]
  - Crohn^s disease [Recovering/Resolving]
  - Renal impairment [Unknown]
  - Inappropriate schedule of product administration [Recovering/Resolving]
  - Urine odour abnormal [Unknown]
  - Micturition urgency [Unknown]
  - Frequent bowel movements [Unknown]
  - Cystitis [Recovered/Resolved]
  - Blood pressure increased [Recovering/Resolving]
  - Vomiting [Unknown]
  - Fatigue [Unknown]

NARRATIVE: CASE EVENT DATE: 20250201
